FAERS Safety Report 9737408 (Version 2)
Quarter: 2013Q4

REPORT INFORMATION
  Report Type: Spontaneous
  Country: JP (occurrence: JP)
  Receive Date: 20131206
  Receipt Date: 20131206
  Transmission Date: 20140711
  Serious: Yes (Hospitalization, Other)
  Sender: FDA-Public Use
  Company Number: JP-009507513-1311JPN008406

PATIENT
  Age: 19 Year
  Sex: Male
  Weight: 61.8 kg

DRUGS (5)
  1. ROCURONIUM BROMIDE [Suspect]
     Indication: GENERAL ANAESTHESIA
     Dosage: 50 MG, UNK
  2. FENTANYL [Suspect]
     Indication: INDUCTION OF ANAESTHESIA
     Dosage: 100 MICROGRAM, UNK
  3. PROPOFOL [Suspect]
     Indication: INDUCTION OF ANAESTHESIA
     Dosage: 100 MG, UNK
  4. PROPOFOL [Suspect]
     Dosage: 20 MG, UNK
  5. SEVOFLURANE [Suspect]
     Indication: INDUCTION OF ANAESTHESIA

REACTIONS (2)
  - Anaphylactic shock [Recovering/Resolving]
  - Endotracheal intubation [Recovering/Resolving]
